FAERS Safety Report 14813497 (Version 3)
Quarter: 2018Q2

REPORT INFORMATION
  Report Type: Spontaneous
  Country: IT (occurrence: IT)
  Receive Date: 20180426
  Receipt Date: 20180614
  Transmission Date: 20180711
  Serious: Yes (Other)
  Sender: FDA-Public Use
  Company Number: IT-SUN PHARMACEUTICAL INDUSTRIES LTD-2018RR-171033

PATIENT
  Age: 87 Year
  Sex: Female

DRUGS (11)
  1. LOSAZID 50 MG + 12,5 MG COMPRESSE RIVESTITE CON FILM [Suspect]
     Active Substance: HYDROCHLOROTHIAZIDE\LOSARTAN POTASSIUM
     Indication: INTENTIONAL SELF-INJURY
     Dosage: 3 DF, IN TOTAL
     Route: 048
     Dates: start: 20171205, end: 20171205
  2. CINNARIZINE [Suspect]
     Active Substance: CINNARIZINE
     Indication: TEMPORAL ARTERITIS
     Dosage: 100 MG, DAILY
     Route: 048
     Dates: start: 20150101, end: 20171205
  3. ATORVASTATIN [Suspect]
     Active Substance: ATORVASTATIN
     Indication: INTENTIONAL SELF-INJURY
     Dosage: 80 MG, IN TOTAL
     Route: 048
     Dates: start: 20171205, end: 20171205
  4. CARDIOASPIRIN 100 MG COMPRESSE GASTRORESISTENTI [Suspect]
     Active Substance: ASPIRIN
     Indication: INTENTIONAL SELF-INJURY
     Dosage: 300 MG, IN TOTAL
     Route: 048
     Dates: start: 20171205, end: 20171205
  5. CINNARIZINE [Suspect]
     Active Substance: CINNARIZINE
     Indication: TEMPORAL ARTERITIS
  6. DAPAROX 20 MG COMPRESSE RIVESTITE CON FILM [Suspect]
     Active Substance: PAROXETINE HYDROCHLORIDE
     Indication: MAJOR DEPRESSION
     Dosage: 20 MG, DAILY
     Route: 048
     Dates: start: 20150101, end: 20171205
  7. ATORVASTATIN [Suspect]
     Active Substance: ATORVASTATIN
     Indication: HYPERCHOLESTEROLAEMIA
     Dosage: 20 MG, DAILY
     Route: 048
     Dates: start: 20150101, end: 20171205
  8. LOSAZID 50 MG + 12,5 MG COMPRESSE RIVESTITE CON FILM [Suspect]
     Active Substance: HYDROCHLOROTHIAZIDE\LOSARTAN POTASSIUM
     Indication: HYPERTENSION
     Dosage: 62.5 ?G, DAILY
     Route: 048
     Dates: start: 20150101, end: 20171205
  9. CARDIOASPIRIN 100 MG COMPRESSE GASTRORESISTENTI [Suspect]
     Active Substance: ASPIRIN
     Indication: ARTERIAL THROMBOSIS
     Dosage: 100 MG, DAILY
     Route: 048
     Dates: start: 20150101, end: 20171205
  10. CINNARIZINE [Suspect]
     Active Substance: CINNARIZINE
     Indication: INTENTIONAL SELF-INJURY
     Dosage: 300 MG, IN TOTAL
     Route: 048
     Dates: start: 20171205, end: 20171205
  11. DAPAROX 20 MG COMPRESSE RIVESTITE CON FILM [Suspect]
     Active Substance: PAROXETINE HYDROCHLORIDE
     Indication: INTENTIONAL SELF-INJURY
     Dosage: 80 MG, IN TOTAL
     Route: 048
     Dates: start: 20171205, end: 20171205

REACTIONS (2)
  - Depression [Recovering/Resolving]
  - Drug abuse [Recovering/Resolving]

NARRATIVE: CASE EVENT DATE: 20171205
